FAERS Safety Report 4911767-8 (Version None)
Quarter: 2006Q1

REPORT INFORMATION
  Report Type: 
  Country: None (occurrence: None)
  Receive Date: 20060213
  Receipt Date: 20060213
  Transmission Date: 20060701
  Serious: Yes (Hospitalization)
  Sender: FDA-Public Use
  Company Number: None

PATIENT
  Age: 80 Year
  Sex: Male
  Weight: 78.0187 kg

DRUGS (2)
  1. EXELON [Suspect]
     Indication: DEMENTIA ALZHEIMER'S TYPE
     Dosage: 1.5 MG  BID  PO
     Route: 048
     Dates: start: 20060201, end: 20060203
  2. DEPAKOTE ER [Suspect]
     Indication: DEMENTIA ALZHEIMER'S TYPE
     Dosage: 250 MG  BID  PO
     Route: 048
     Dates: start: 20060201, end: 20060203

REACTIONS (8)
  - CONFUSIONAL STATE [None]
  - DIFFICULTY IN WALKING [None]
  - FALL [None]
  - HALLUCINATION [None]
  - LETHARGY [None]
  - MENTAL STATUS CHANGES [None]
  - SEDATION [None]
  - SOMNOLENCE [None]
